FAERS Safety Report 8679166 (Version 3)
Quarter: 2012Q4

REPORT INFORMATION
  Report Type: 
  Country: US (occurrence: US)
  Receive Date: 20120724
  Receipt Date: 20120905
  Transmission Date: 20130627
  Serious: No
  Sender: FDA-Public Use
  Company Number: US-PFIZER INC-2012174510

PATIENT
  Age: 74 Year
  Sex: Male
  Weight: 82 kg

DRUGS (8)
  1. NITROSTAT [Suspect]
     Indication: CHEST PAIN
     Dosage: 0.4 mg, as needed
     Route: 060
     Dates: start: 20120423
  2. LASIX [Concomitant]
     Dosage: 20 mg, daily
  3. NEXIUM [Concomitant]
     Dosage: 40 mg, daily
  4. MICARDIS [Concomitant]
     Dosage: 80 mg, daily
  5. IMDUR [Concomitant]
     Dosage: 60 mg, 2x/day
  6. ZYLOPRIM [Concomitant]
     Dosage: 100 mg, daily
  7. CRESTOR [Concomitant]
     Dosage: 20 mg, daily
  8. COREG [Concomitant]
     Dosage: 20 mg, daily

REACTIONS (2)
  - Drug ineffective [Recovered/Resolved]
  - Headache [Recovered/Resolved]
